FAERS Safety Report 6679393-0 (Version None)
Quarter: 2010Q2

REPORT INFORMATION
  Report Type: 
  Country: None (occurrence: None)
  Receive Date: 20100413
  Receipt Date: 20100330
  Transmission Date: 20101027
  Serious: Yes (Death, Other)
  Sender: FDA-Public Use
  Company Number: US-ROCHE-693716

PATIENT
  Sex: Female
  Weight: 197.4 kg

DRUGS (3)
  1. BEVACIZUMAB [Suspect]
     Indication: ENDOMETRIAL DISORDER
     Dosage: STRENGTH: 25 MG/ML
     Route: 042
     Dates: start: 20100210, end: 20100224
  2. AMLODIPINE [Concomitant]
  3. ZOFRAN [Concomitant]
     Dates: start: 20100210

REACTIONS (6)
  - ASPARTATE AMINOTRANSFERASE INCREASED [None]
  - DEATH [None]
  - DISEASE PROGRESSION [None]
  - METASTASES TO LIVER [None]
  - METASTASES TO LUNG [None]
  - PORTAL VEIN THROMBOSIS [None]
